FAERS Safety Report 7005392-5 (Version None)
Quarter: 2010Q3

REPORT INFORMATION
  Report Type: 
  Country: None (occurrence: None)
  Receive Date: 20100917
  Receipt Date: 20100904
  Transmission Date: 20110219
  Serious: Yes (Hospitalization)
  Sender: FDA-Public Use
  Company Number: 1000016226

PATIENT
  Sex: Male

DRUGS (4)
  1. CITALOPRAM HYDROBROMIDE [Suspect]
     Dates: end: 20100901
  2. ANTIPSYCHOTICS (ANTIPSYCHOTICS) [Suspect]
  3. CITALOPRAM HYDROBROMIDE [Concomitant]
  4. ANTIPSYCHOTICS (ANTIPSYCHOTICS) [Concomitant]

REACTIONS (4)
  - HYPERTHERMIA [None]
  - MYOCLONUS [None]
  - NEUROLEPTIC MALIGNANT SYNDROME [None]
  - WITHDRAWAL SYNDROME [None]
